FAERS Safety Report 10176095 (Version 4)
Quarter: 2014Q3

REPORT INFORMATION
  Report Type: Spontaneous
  Country: US (occurrence: US)
  Receive Date: 20140516
  Receipt Date: 20140804
  Transmission Date: 20150326
  Serious: Yes (Other)
  Sender: FDA-Public Use
  Company Number: US-PFIZER INC-2014130486

PATIENT
  Age: 46 Year
  Sex: Male

DRUGS (1)
  1. LYRICA [Suspect]
     Active Substance: PREGABALIN
     Indication: CONVULSION
     Dosage: 150 MG, 2X/DAY
     Route: 048

REACTIONS (3)
  - Convulsion [Unknown]
  - Road traffic accident [Unknown]
  - Accident [Unknown]
